FAERS Safety Report 25376906 (Version 1)
Quarter: 2025Q2

REPORT INFORMATION
  Report Type: Spontaneous
  Country: US (occurrence: US)
  Receive Date: 20250530
  Receipt Date: 20250530
  Transmission Date: 20250717
  Serious: No
  Sender: CIPLA
  Company Number: US-CIPLA LTD.-2024US04247

PATIENT

DRUGS (4)
  1. ALBUTEROL [Suspect]
     Active Substance: ALBUTEROL
     Indication: Asthma
  2. ALBUTEROL [Suspect]
     Active Substance: ALBUTEROL
     Dates: start: 20240330
  3. ALBUTEROL [Suspect]
     Active Substance: ALBUTEROL
     Dates: start: 20240330
  4. ALBUTEROL SULFATE [Concomitant]
     Active Substance: ALBUTEROL SULFATE
     Indication: Asthma
     Route: 065
     Dates: start: 2014

REACTIONS (6)
  - Asthma [Recovered/Resolved]
  - Drug ineffective [Recovered/Resolved]
  - Device delivery system issue [Unknown]
  - Intentional product use issue [Unknown]
  - Product quality issue [Unknown]
  - Device breakage [Unknown]

NARRATIVE: CASE EVENT DATE: 20240401
